FAERS Safety Report 5634780-4 (Version None)
Quarter: 2008Q1

REPORT INFORMATION
  Report Type: 
  Country: None (occurrence: None)
  Receive Date: 20080222
  Receipt Date: 20080215
  Transmission Date: 20080703
  Serious: Yes (Hospitalization)
  Sender: FDA-Public Use
  Company Number: US-ASTRAZENECA-2006UW16345

PATIENT
  Age: 11963 Day
  Sex: Female
  Weight: 100 kg

DRUGS (8)
  1. SEROQUEL [Suspect]
     Indication: DEPRESSION
     Route: 048
     Dates: start: 20040405, end: 20040731
  2. SEROQUEL [Suspect]
     Indication: BIPOLAR DISORDER
     Route: 048
     Dates: start: 20040405, end: 20040731
  3. RISPERDAL [Suspect]
     Dates: start: 20030601, end: 20040301
  4. ZYPREXA [Concomitant]
     Dates: start: 20061001
  5. ADIPEX [Concomitant]
     Indication: WEIGHT CONTROL
     Dates: start: 20050101
  6. ABILIFY [Concomitant]
     Dates: start: 20050701, end: 20050801
  7. GEODON [Concomitant]
     Dates: start: 20050401, end: 20060501
  8. TRILAFON [Concomitant]
     Dates: start: 20050801

REACTIONS (9)
  - AFFECTIVE DISORDER [None]
  - ASTHENIA [None]
  - BLOOD CHOLESTEROL INCREASED [None]
  - DIABETES MELLITUS [None]
  - HYPERGLYCAEMIA [None]
  - HYPERLIPIDAEMIA [None]
  - LOSS OF CONSCIOUSNESS [None]
  - VISION BLURRED [None]
  - WEIGHT INCREASED [None]
